FAERS Safety Report 4459857-0 (Version None)
Quarter: 2004Q3

REPORT INFORMATION
  Report Type: 
  Country: None (occurrence: None)
  Receive Date: 20040923
  Receipt Date: 20040907
  Transmission Date: 20050211
  Serious: Yes (Hospitalization)
  Sender: FDA-Public Use
  Company Number: DSA_24964_2004

PATIENT
  Age: 40 Year
  Sex: Female

DRUGS (5)
  1. LORAZEPAM [Suspect]
     Indication: SCHIZOPHRENIA
     Dosage: 0.5 MG
  2. QUETIAPINE [Concomitant]
  3. TRIMIPRAMINE MALEATE [Concomitant]
  4. PIPOMPERONE [Concomitant]
  5. DIAZEPAM [Concomitant]

REACTIONS (4)
  - BLOOD CREATINE PHOSPHOKINASE INCREASED [None]
  - BLOOD CREATINE PHOSPHOKINASE MB INCREASED [None]
  - ELECTROCARDIOGRAM QT PROLONGED [None]
  - HEPATIC ENZYME INCREASED [None]
